FAERS Safety Report 24004373 (Version 1)
Quarter: 2024Q2

REPORT INFORMATION
  Report Type: Spontaneous
  Country: US (occurrence: US)
  Receive Date: 20240624
  Receipt Date: 20240624
  Transmission Date: 20240716
  Serious: Yes (Other)
  Sender: FDA-Public Use
  Company Number: US-BRISTOL-MYERS SQUIBB COMPANY-2024-099412

PATIENT
  Age: 72 Year
  Sex: Male
  Weight: 70.76 kg

DRUGS (6)
  1. REVLIMID [Suspect]
     Active Substance: LENALIDOMIDE
     Indication: Plasma cell myeloma
     Route: 048
     Dates: start: 20240217, end: 202406
  2. REVLIMID [Suspect]
     Active Substance: LENALIDOMIDE
     Dosage: QOD
     Route: 048
     Dates: start: 202406
  3. ELIQUIS [Concomitant]
     Active Substance: APIXABAN
     Indication: Product used for unknown indication
     Dosage: TAKE 1 BY MOUTH DAILY
     Route: 048
  4. TORSEMIDE [Concomitant]
     Active Substance: TORSEMIDE
     Indication: Product used for unknown indication
     Dosage: TAKE 1 PO DAILY
     Route: 048
  5. SPIRONOLACTONE [Concomitant]
     Active Substance: SPIRONOLACTONE
     Indication: Product used for unknown indication
     Dosage: 1/2 TABLET PO DAILY
     Route: 048
  6. FARXIGA [Concomitant]
     Active Substance: DAPAGLIFLOZIN PROPANEDIOL
     Indication: Product used for unknown indication
     Dosage: TAKE 1 PO DAILY
     Route: 048

REACTIONS (1)
  - Creatinine renal clearance increased [Unknown]

NARRATIVE: CASE EVENT DATE: 20240619
